FAERS Safety Report 5076151-8 (Version None)
Quarter: 2006Q3

REPORT INFORMATION
  Report Type: 
  Country: None (occurrence: None)
  Receive Date: 20060804
  Receipt Date: 20060728
  Transmission Date: 20061208
  Serious: Yes (Hospitalization)
  Sender: FDA-Public Use
  Company Number: 230047M06GBR

PATIENT
  Age: 40 Year
  Sex: Male

DRUGS (4)
  1. REBIF [Suspect]
     Indication: MULTIPLE SCLEROSIS
     Dosage: 44 MG, 3 IN 1 WEEKS, SUBCUTANEOUS
     Route: 058
     Dates: end: 20060707
  2. GABAPENTIN [Concomitant]
  3. BACLOFEN [Concomitant]
  4. BACLOFEN [Concomitant]

REACTIONS (4)
  - HYPERTHYROIDISM [None]
  - NIGHT SWEATS [None]
  - PYREXIA [None]
  - WHITE BLOOD CELL COUNT DECREASED [None]
